FAERS Safety Report 8487408-2 (Version None)
Quarter: 2012Q2

REPORT INFORMATION
  Report Type: 
  Country: None (occurrence: None)
  Receive Date: 20120628
  Receipt Date: 20120628
  Transmission Date: 20120825
  Serious: Yes (Hospitalization)
  Sender: FDA-Public Use
  Company Number: None

PATIENT
  Sex: Male
  Weight: 70.3 kg

DRUGS (2)
  1. CARBOPLATIN [Suspect]
     Dosage: 1200 MG
  2. TAXOL [Suspect]
     Dosage: 388 MG

REACTIONS (3)
  - PAIN [None]
  - ANAEMIA [None]
  - DEHYDRATION [None]
